FAERS Safety Report 7752417-5 (Version None)
Quarter: 2011Q3

REPORT INFORMATION
  Report Type: 
  Country: None (occurrence: None)
  Receive Date: 20110913
  Receipt Date: 20110902
  Transmission Date: 20111222
  Serious: Yes (Hospitalization, Other)
  Sender: FDA-Public Use
  Company Number: 2009-193180-NL

PATIENT
  Age: 37 Year
  Sex: Female
  Weight: 94.8925 kg

DRUGS (5)
  1. NUVARING [Suspect]
     Indication: MENORRHAGIA
     Dosage: Q3W; VAG
     Route: 067
     Dates: start: 20060101, end: 20090115
  2. NUVARING [Suspect]
     Indication: MENSTRUATION IRREGULAR
     Dosage: Q3W; VAG
     Route: 067
     Dates: start: 20060101, end: 20090115
  3. NUVARING [Suspect]
     Indication: CONTRACEPTION
     Dosage: Q3W; VAG
     Route: 067
     Dates: start: 20060101, end: 20090115
  4. MULTI-VITAMINS [Concomitant]
  5. VITAMIN B-12 [Concomitant]

REACTIONS (11)
  - PAIN IN EXTREMITY [None]
  - LEFT VENTRICULAR HYPERTROPHY [None]
  - MITRAL VALVE INCOMPETENCE [None]
  - TRICUSPID VALVE INCOMPETENCE [None]
  - HYPOAESTHESIA [None]
  - TYPE 2 DIABETES MELLITUS [None]
  - MUSCULOSKELETAL PAIN [None]
  - PULMONARY EMBOLISM [None]
  - HEPATIC STEATOSIS [None]
  - MUSCLE SPASMS [None]
  - THROMBOSIS [None]
